FAERS Safety Report 17285644 (Version 1)
Quarter: 2020Q1

REPORT INFORMATION
  Report Type: Spontaneous
  Country: US (occurrence: US)
  Receive Date: 20200117
  Receipt Date: 20200117
  Transmission Date: 20200409
  Serious: No
  Sender: FDA-Public Use
  Company Number: NVSC2020US009958

PATIENT
  Age: 46 Year
  Sex: Female

DRUGS (1)
  1. IMATINIB. [Suspect]
     Active Substance: IMATINIB MESYLATE
     Indication: METAPLASTIC BREAST CARCINOMA
     Dosage: 400 MG, QD
     Route: 065

REACTIONS (1)
  - Fluid retention [Unknown]
